APPROVED DRUG PRODUCT: ERYTHROMYCIN STEARATE
Active Ingredient: ERYTHROMYCIN STEARATE
Strength: EQ 500MG BASE
Dosage Form/Route: TABLET;ORAL
Application: A062121 | Product #001
Applicant: WATSON LABORATORIES INC
Approved: Approved Prior to Jan 1, 1982 | RLD: No | RS: No | Type: DISCN